FAERS Safety Report 11504799 (Version 1)
Quarter: 2015Q3

REPORT INFORMATION
  Report Type: Spontaneous
  Country: US (occurrence: US)
  Receive Date: 20150915
  Receipt Date: 20150915
  Transmission Date: 20151125
  Serious: No
  Sender: FDA-Public Use
  Company Number: US-ROCHE-748153

PATIENT
  Sex: Female

DRUGS (2)
  1. RIBAVIRIN. [Suspect]
     Active Substance: RIBAVIRIN
     Indication: HEPATITIS C
     Dosage: IN DIVIDED DOSES?20 WEEKS OF THERAPY
     Route: 048
  2. PEGASYS [Suspect]
     Active Substance: PEGINTERFERON ALFA-2A
     Indication: HEPATITIS C
     Dosage: FORM: PRE-FILLED SYRINGE?20 WEEKS OF THERAPY
     Route: 058

REACTIONS (5)
  - Irritability [Recovering/Resolving]
  - Agitation [Unknown]
  - Oral disorder [Not Recovered/Not Resolved]
  - Fatigue [Unknown]
  - Mental impairment [Unknown]
